FAERS Safety Report 6785534-7 (Version None)
Quarter: 2010Q2

REPORT INFORMATION
  Report Type: 
  Country: None (occurrence: None)
  Receive Date: 20100621
  Receipt Date: 20100621
  Transmission Date: 20101027
  Serious: Yes (Hospitalization)
  Sender: FDA-Public Use
  Company Number: None

PATIENT
  Age: 61 Year
  Sex: Female
  Weight: 93.6 kg

DRUGS (9)
  1. CISPLATIN [Suspect]
     Indication: SQUAMOUS CELL CARCINOMA
     Dosage: 190 MG Q3WK IV PB
     Route: 042
  2. LISINOPRIL [Suspect]
     Dosage: 20 MG QDAY PO
     Route: 048
  3. POLYETHYLENE [Concomitant]
  4. CELEXA [Concomitant]
  5. DIFLUCAN [Concomitant]
  6. METOPROLOL [Concomitant]
  7. INSULIN [Concomitant]
  8. ZOFRAN [Concomitant]
  9. .. [Concomitant]

REACTIONS (5)
  - DEHYDRATION [None]
  - LETHARGY [None]
  - MENTAL STATUS CHANGES [None]
  - RENAL FAILURE ACUTE [None]
  - THERAPEUTIC AGENT TOXICITY [None]
